FAERS Safety Report 17176178 (Version 2)
Quarter: 2020Q2

REPORT INFORMATION
  Report Type: Report from Study
  Country: US (occurrence: US)
  Receive Date: 20191219
  Receipt Date: 20200422
  Transmission Date: 20200713
  Serious: Yes (Other)
  Sender: FDA-Public Use
  Company Number: US-ROCHE-2496269

PATIENT
  Sex: Male

DRUGS (1)
  1. OCREVUS [Suspect]
     Active Substance: OCRELIZUMAB
     Indication: MULTIPLE SCLEROSIS
     Dosage: HAS HAD 4 INFUSIONS
     Route: 065

REACTIONS (9)
  - Bacterial infection [Recovered/Resolved]
  - Dizziness [Unknown]
  - Feeling abnormal [Not Recovered/Not Resolved]
  - Immunodeficiency [Unknown]
  - Viral infection [Recovered/Resolved]
  - Eye infection staphylococcal [Not Recovered/Not Resolved]
  - Weight decreased [Recovered/Resolved]
  - Impaired work ability [Not Recovered/Not Resolved]
  - Vision blurred [Unknown]

NARRATIVE: CASE EVENT DATE: 2019
